FAERS Safety Report 6152973-7 (Version None)
Quarter: 2009Q2

REPORT INFORMATION
  Report Type: 
  Country: None (occurrence: None)
  Receive Date: 20090413
  Receipt Date: 20090403
  Transmission Date: 20091009
  Serious: Yes (Congenital Anomaly)
  Sender: FDA-Public Use
  Company Number: A0680443A

PATIENT
  Sex: Male

DRUGS (9)
  1. PAXIL [Suspect]
     Indication: DEPRESSION
     Dates: end: 20040101
  2. PAXIL CR [Suspect]
     Indication: DEPRESSION
     Dates: end: 20040311
  3. PAROXETINE HCL [Suspect]
     Indication: DEPRESSION
  4. SYNTHROID [Concomitant]
  5. VALTREX [Concomitant]
  6. AMOXIL [Concomitant]
     Dates: start: 20020701
  7. LORTAB [Concomitant]
     Dates: start: 20020701
  8. CORTISPORIN [Concomitant]
     Dates: start: 20020701
  9. AURALGAN [Concomitant]

REACTIONS (9)
  - ASTHMA [None]
  - ATRIAL SEPTAL DEFECT [None]
  - BRONCHIAL HYPERREACTIVITY [None]
  - CARDIAC MURMUR [None]
  - DRUG EXPOSURE DURING PREGNANCY [None]
  - MULTIPLE CONGENITAL ABNORMALITIES [None]
  - PNEUMONIA [None]
  - RESPIRATORY DISTRESS [None]
  - TRANSIENT TACHYPNOEA OF THE NEWBORN [None]
